FAERS Safety Report 25701916 (Version 1)
Quarter: 2025Q3

REPORT INFORMATION
  Report Type: Spontaneous
  Country: US (occurrence: US)
  Receive Date: 20250819
  Receipt Date: 20250819
  Transmission Date: 20251021
  Serious: No
  Sender: GALPHARM INTERNATIONAL
  Company Number: US-PERRIGO-25US003431

PATIENT
  Sex: Female
  Weight: 83.9 kg

DRUGS (15)
  1. MINOXIDIL [Suspect]
     Active Substance: MINOXIDIL
     Indication: Alopecia
     Dosage: 1ML, BID
     Route: 061
  2. MINOXIDIL [Suspect]
     Active Substance: MINOXIDIL
     Dosage: 1ML, BID
     Route: 061
  3. FISH OIL [Concomitant]
     Active Substance: FISH OIL
     Indication: Dry eye
     Route: 065
     Dates: start: 2008
  4. LUTEIN MAX COMPLEX [Concomitant]
     Indication: Prophylaxis
     Route: 065
     Dates: start: 2008
  5. VITAMIN B12 [Concomitant]
     Active Substance: CYANOCOBALAMIN
     Indication: Supplementation therapy
     Route: 065
     Dates: start: 2008
  6. BIOTIN [Concomitant]
     Active Substance: BIOTIN
     Indication: Routine health maintenance
     Route: 065
     Dates: start: 2008
  7. ASCORBIC ACID [Concomitant]
     Active Substance: ASCORBIC ACID
     Indication: Supplementation therapy
     Route: 065
     Dates: start: 2008
  8. VITAMIN D3 [Concomitant]
     Active Substance: CHOLECALCIFEROL
     Indication: Bone density abnormal
     Route: 065
     Dates: start: 2008
  9. .ALPHA.-TOCOPHEROL [Concomitant]
     Active Substance: .ALPHA.-TOCOPHEROL
     Indication: Routine health maintenance
     Route: 065
     Dates: start: 2008
  10. DIETARY SUPPLEMENT\HERBALS\MILK THISTLE [Concomitant]
     Active Substance: MILK THISTLE
     Indication: Routine health maintenance
     Route: 065
     Dates: start: 2008
  11. VITAMINS NOS [Concomitant]
     Active Substance: VITAMINS
     Indication: Supplementation therapy
     Route: 065
     Dates: start: 2008
  12. OSTEO-BI-FLEX [Concomitant]
     Indication: Routine health maintenance
     Route: 065
     Dates: start: 2008
  13. PROBIOTICS NOS [Concomitant]
     Active Substance: PROBIOTICS NOS
     Indication: Routine health maintenance
     Route: 065
     Dates: start: 2008
  14. TURMERIC [Concomitant]
     Active Substance: TURMERIC
     Indication: Arthritis
     Route: 065
     Dates: start: 2008
  15. ZINC [Concomitant]
     Active Substance: ZINC
     Indication: Routine health maintenance
     Route: 065
     Dates: start: 2008

REACTIONS (1)
  - Therapeutic product effect decreased [Unknown]
